FAERS Safety Report 13215778 (Version 2)
Quarter: 2018Q1

REPORT INFORMATION
  Report Type: Spontaneous
  Country: US (occurrence: US)
  Receive Date: 20170210
  Receipt Date: 20180219
  Transmission Date: 20180508
  Serious: No
  Sender: FDA-Public Use
  Company Number: US-ROCHE-1752023

PATIENT
  Sex: Female
  Weight: 104.42 kg

DRUGS (1)
  1. XOLAIR [Suspect]
     Active Substance: OMALIZUMAB
     Indication: ASTHMA
     Dosage: START DATE: 6 YEARS AGO.
     Route: 058

REACTIONS (2)
  - Maternal exposure during pregnancy [Unknown]
  - Blood pressure increased [Unknown]
